FAERS Safety Report 5783228-8 (Version None)
Quarter: 2008Q2

REPORT INFORMATION
  Report Type: 
  Country: None (occurrence: None)
  Receive Date: 20080605
  Receipt Date: 20080313
  Transmission Date: 20081010
  Serious: No
  Sender: FDA-Public Use
  Company Number: A0715177A

PATIENT
  Sex: Female

DRUGS (3)
  1. ALLI [Suspect]
  2. VITAMINS [Concomitant]
  3. IUD [Concomitant]

REACTIONS (3)
  - MALAISE [None]
  - METRORRHAGIA [None]
  - VOMITING [None]
